FAERS Safety Report 11433260 (Version 1)
Quarter: 2015Q3

REPORT INFORMATION
  Report Type: Spontaneous
  Country: US (occurrence: None)
  Receive Date: 20150828
  Receipt Date: 20150828
  Transmission Date: 20151125
  Serious: Yes (Hospitalization)
  Sender: FDA-Public Use
  Company Number: None

PATIENT
  Age: 32 Year
  Sex: Male
  Weight: 57.7 kg

DRUGS (4)
  1. CISPLATIN. [Suspect]
     Active Substance: CISPLATIN
     Dates: end: 20150818
  2. NEULASTA [Suspect]
     Active Substance: PEGFILGRASTIM
     Dates: end: 20150820
  3. TAXOL [Suspect]
     Active Substance: PACLITAXEL
     Dates: end: 20150814
  4. IFOSFAMIDE. [Suspect]
     Active Substance: IFOSFAMIDE
     Dates: end: 20150818

REACTIONS (8)
  - Infection [None]
  - Hypophagia [None]
  - Neutropenia [None]
  - Pyrexia [None]
  - Diarrhoea [None]
  - Vomiting [None]
  - Hyponatraemia [None]
  - Nausea [None]

NARRATIVE: CASE EVENT DATE: 20150824
